FAERS Safety Report 5636043-X (Version None)
Quarter: 2008Q1

REPORT INFORMATION
  Report Type: 
  Country: None (occurrence: None)
  Receive Date: 20080220
  Receipt Date: 20080220
  Transmission Date: 20080703
  Serious: Yes (Life-Threatening, Hospitalization, Other)
  Sender: FDA-Public Use
  Company Number: None

PATIENT
  Sex: Female
  Weight: 67.586 kg

DRUGS (2)
  1. COLCHICINE ? ? [Suspect]
     Indication: NECK PAIN
     Dosage: 2 MG 1 WK IV BOLUS
     Route: 040
     Dates: start: 20050901, end: 20060331
  2. COLCHICINE ? ? [Suspect]
     Indication: TEMPOROMANDIBULAR JOINT SYNDROME
     Dosage: 2 MG 1 WK IV BOLUS
     Route: 040
     Dates: start: 20050901, end: 20060331

REACTIONS (22)
  - ALTERNARIA INFECTION [None]
  - ANGIOPATHY [None]
  - ARRHYTHMIA [None]
  - ARTHRALGIA [None]
  - ASTHENIA [None]
  - BLADDER PAIN [None]
  - BONE PAIN [None]
  - BURNING SENSATION [None]
  - CANDIDIASIS [None]
  - COGNITIVE DISORDER [None]
  - DIARRHOEA [None]
  - DRUG TOXICITY [None]
  - FAECAL INCONTINENCE [None]
  - GASTROINTESTINAL MOTILITY DISORDER [None]
  - HYPOTENSION [None]
  - LOOSE TOOTH [None]
  - MUCOUS MEMBRANE DISORDER [None]
  - MYALGIA [None]
  - MYOPATHY [None]
  - NEURALGIA [None]
  - NEUROPATHY PERIPHERAL [None]
  - SYNCOPE [None]
